FAERS Safety Report 7217010-1 (Version None)
Quarter: 2011Q1

REPORT INFORMATION
  Report Type: 
  Country: None (occurrence: None)
  Receive Date: 20110110
  Receipt Date: 20101228
  Transmission Date: 20110831
  Serious: Yes (Hospitalization)
  Sender: FDA-Public Use
  Company Number: FR-PFIZER INC-2011002493

PATIENT
  Age: 24 Year
  Sex: Female

DRUGS (1)
  1. ATARAX [Suspect]
     Indication: ANXIETY
     Dosage: UNK
     Route: 048
     Dates: start: 20101129, end: 20101201

REACTIONS (1)
  - TRANSAMINASES INCREASED [None]
